FAERS Safety Report 4667328-1 (Version None)
Quarter: 2005Q2

REPORT INFORMATION
  Report Type: 
  Country: None (occurrence: None)
  Receive Date: 20050520
  Receipt Date: 20041008
  Transmission Date: 20051028
  Serious: Yes (Other)
  Sender: FDA-Public Use
  Company Number: PHEH2004US10906

PATIENT
  Age: 53 Year
  Sex: Male
  Weight: 93 kg

DRUGS (1)
  1. ZOMETA [Suspect]
     Indication: MULTIPLE MYELOMA
     Dosage: 4MG Q4WEEKS
     Dates: start: 20031101, end: 20041008

REACTIONS (3)
  - ASEPTIC NECROSIS BONE [None]
  - BIOPSY BONE ABNORMAL [None]
  - OSTEONECROSIS [None]
